FAERS Safety Report 20099486 (Version 1)
Quarter: 2021Q4

REPORT INFORMATION
  Report Type: Report from Study
  Country: US (occurrence: None)
  Receive Date: 20211123
  Receipt Date: 20211123
  Transmission Date: 20220303
  Serious: Yes (Other)
  Sender: FDA-Public Use
  Company Number: 2021A808401

PATIENT
  Age: 71 Year
  Sex: Male
  Weight: 71.7 kg

DRUGS (1)
  1. TAGRISSO [Suspect]
     Active Substance: OSIMERTINIB
     Indication: Non-small cell lung cancer stage IV
     Route: 048
     Dates: start: 20211019

REACTIONS (2)
  - Gastrooesophageal reflux disease [Unknown]
  - Memory impairment [Unknown]
